FAERS Safety Report 20737890 (Version 1)
Quarter: 2022Q2

REPORT INFORMATION
  Report Type: Spontaneous
  Country: CA (occurrence: CA)
  Receive Date: 20220422
  Receipt Date: 20220422
  Transmission Date: 20220721
  Serious: Yes (Other)
  Sender: FDA-Public Use
  Company Number: CA-TEVA-2022-CA-2027993

PATIENT
  Age: 76 Year
  Sex: Male

DRUGS (31)
  1. CLONAZEPAM [Suspect]
     Active Substance: CLONAZEPAM
     Indication: Product used for unknown indication
     Route: 065
  2. ACTEMRA [Suspect]
     Active Substance: TOCILIZUMAB
     Indication: Rheumatoid arthritis
     Route: 042
  3. ACTEMRA [Suspect]
     Active Substance: TOCILIZUMAB
     Route: 042
  4. ACTEMRA [Suspect]
     Active Substance: TOCILIZUMAB
     Route: 042
  5. ACTEMRA [Suspect]
     Active Substance: TOCILIZUMAB
     Route: 042
  6. ACTEMRA [Suspect]
     Active Substance: TOCILIZUMAB
     Route: 042
  7. ACTEMRA [Suspect]
     Active Substance: TOCILIZUMAB
     Route: 042
  8. ACTEMRA [Suspect]
     Active Substance: TOCILIZUMAB
     Route: 042
  9. ACTEMRA [Suspect]
     Active Substance: TOCILIZUMAB
     Route: 042
  10. ACTEMRA [Suspect]
     Active Substance: TOCILIZUMAB
     Route: 042
  11. ACTEMRA [Suspect]
     Active Substance: TOCILIZUMAB
     Route: 042
  12. ACTEMRA [Suspect]
     Active Substance: TOCILIZUMAB
     Route: 042
  13. ACTEMRA [Suspect]
     Active Substance: TOCILIZUMAB
     Route: 042
  14. ACTEMRA [Suspect]
     Active Substance: TOCILIZUMAB
     Route: 042
  15. ACTEMRA [Suspect]
     Active Substance: TOCILIZUMAB
     Route: 042
  16. ASPIRIN [Concomitant]
     Active Substance: ASPIRIN
     Route: 065
  17. AMITRIPTYLINE [Concomitant]
     Active Substance: AMITRIPTYLINE
  18. AMLODIPINE [Concomitant]
     Active Substance: AMLODIPINE BESYLATE
     Route: 065
  19. BISOPROLOL [Concomitant]
     Active Substance: BISOPROLOL
     Route: 065
  20. CRESTOR [Concomitant]
     Active Substance: ROSUVASTATIN CALCIUM
  21. DIMENHYDRINATE [Concomitant]
     Active Substance: DIMENHYDRINATE
  22. DIOVAN [Concomitant]
     Active Substance: VALSARTAN
  23. FERROUS GLUCONATE [Concomitant]
     Active Substance: FERROUS GLUCONATE
  24. MEDROL [Concomitant]
     Active Substance: METHYLPREDNISOLONE
  25. MELOXICAM [Concomitant]
     Active Substance: MELOXICAM
  26. MYRBETRIQ [Concomitant]
     Active Substance: MIRABEGRON
  27. RABEPRAZOLE SODIUM [Concomitant]
     Active Substance: RABEPRAZOLE SODIUM
  28. SIMPONI [Concomitant]
     Active Substance: GOLIMUMAB
  29. TAMSULOSIN [Concomitant]
     Active Substance: TAMSULOSIN
  30. TRAZODONE [Concomitant]
     Active Substance: TRAZODONE HYDROCHLORIDE
  31. VITAMIN D [Concomitant]
     Active Substance: VITAMIN D NOS

REACTIONS (8)
  - Blood pressure fluctuation [Unknown]
  - Blood pressure systolic increased [Unknown]
  - Full blood count abnormal [Unknown]
  - Heart rate decreased [Unknown]
  - Neutropenia [Unknown]
  - Oxygen saturation decreased [Unknown]
  - Weight decreased [Unknown]
  - Weight increased [Unknown]
